FAERS Safety Report 8221785-2 (Version None)
Quarter: 2012Q1

REPORT INFORMATION
  Report Type: 
  Country: None (occurrence: None)
  Receive Date: 20120320
  Receipt Date: 20120320
  Transmission Date: 20120608
  Serious: Yes (Other)
  Sender: FDA-Public Use
  Company Number: None

PATIENT
  Age: 57 Year
  Sex: Female
  Weight: 102.05 kg

DRUGS (3)
  1. AZITHROMYCIN TABS 6'S [Concomitant]
     Indication: PERTUSSIS
     Dosage: 2 X 1 DAY; 1X 4DAY
     Route: 048
     Dates: start: 20120208, end: 20120212
  2. HYDROCODONE BITARTRATE + ACETAMINOPHEN [Suspect]
     Indication: PERTUSSIS
     Route: 048
     Dates: start: 20120212, end: 20120212
  3. HYDROCODONE BITARTRATE + ACETAMINOPHEN [Suspect]
     Indication: MYALGIA
     Route: 048
     Dates: start: 20120212, end: 20120212

REACTIONS (7)
  - URTICARIA [None]
  - DRUG INTERACTION [None]
  - DRUG INEFFECTIVE [None]
  - DRY SKIN [None]
  - DRUG HYPERSENSITIVITY [None]
  - PRURITUS GENERALISED [None]
  - BURNING SENSATION [None]
